FAERS Safety Report 5028999-3 (Version None)
Quarter: 2006Q2

REPORT INFORMATION
  Report Type: 
  Country: None (occurrence: None)
  Receive Date: 20060613
  Receipt Date: 20060605
  Transmission Date: 20061013
  Serious: Yes (Other)
  Sender: FDA-Public Use
  Company Number: S06-USA-01912-01

PATIENT
  Age: 67 Year
  Sex: Male

DRUGS (6)
  1. THYROID TAB [Suspect]
     Indication: HYPOTHYROIDISM
     Dosage: 60 MG QD PO
     Route: 048
     Dates: start: 20060425, end: 20060101
  2. THYROID TAB [Suspect]
     Indication: HYPOTHYROIDISM
     Dosage: 30 MG BID PO
     Route: 048
     Dates: start: 20060101
  3. TARKA (TRANDOLARPIL/VERAPAMIL) [Suspect]
     Indication: HYPERTENSION
     Dates: start: 20060425, end: 20060427
  4. DIOVAN [Concomitant]
  5. BROMALINE [Concomitant]
  6. VITAMINS NOS [Concomitant]

REACTIONS (12)
  - BLOOD CREATININE INCREASED [None]
  - BLOOD PRESSURE DECREASED [None]
  - BLOOD PRESSURE FLUCTUATION [None]
  - BLOOD UREA INCREASED [None]
  - BLOOD UREA NITROGEN/CREATININE RATIO INCREASED [None]
  - C-REACTIVE PROTEIN INCREASED [None]
  - CHONDROCALCINOSIS PYROPHOSPHATE [None]
  - COLD SWEAT [None]
  - HYPERHIDROSIS [None]
  - NAUSEA [None]
  - SLEEP APNOEA SYNDROME [None]
  - WHITE BLOOD CELL COUNT INCREASED [None]
